FAERS Safety Report 6021107-1 (Version None)
Quarter: 2008Q4

REPORT INFORMATION
  Report Type: 
  Country: None (occurrence: None)
  Receive Date: 20081229
  Receipt Date: 20081215
  Transmission Date: 20090506
  Serious: Yes (Death)
  Sender: FDA-Public Use
  Company Number: AU-PFIZER INC-2008158032

PATIENT

DRUGS (6)
  1. DILANTIN [Suspect]
  2. AMIODARONE HYDROCHLORIDE [Suspect]
  3. NEO-MERCAZOLE TAB [Suspect]
  4. OMEPRAZOLE [Suspect]
  5. VALPROATE SODIUM [Suspect]
  6. WARFARIN SODIUM [Suspect]

REACTIONS (13)
  - BLINDNESS [None]
  - CARDIOMEGALY [None]
  - COMA HEPATIC [None]
  - DELIRIUM [None]
  - DEPRESSED LEVEL OF CONSCIOUSNESS [None]
  - DYSPNOEA [None]
  - EXOPHTHALMOS [None]
  - HEPATIC ENCEPHALOPATHY [None]
  - HEPATIC FAILURE [None]
  - HEPATORENAL SYNDROME [None]
  - HYPERTHYROIDISM [None]
  - HYPOTENSION [None]
  - JAUNDICE [None]
